FAERS Safety Report 5984908-1 (Version None)
Quarter: 2008Q4

REPORT INFORMATION
  Report Type: 
  Country: None (occurrence: None)
  Receive Date: 20081202
  Receipt Date: 20081120
  Transmission Date: 20090506
  Serious: Yes (Other)
  Sender: FDA-Public Use
  Company Number: 2008AP003196

PATIENT
  Age: 44 Year
  Sex: Male

DRUGS (3)
  1. CITALOPRAM HYDROBROMIDE [Suspect]
     Dosage: 10 MG; TAB; PO; QD 30 MG; TAB; PO; QD
     Route: 048
     Dates: start: 20080826, end: 20081117
  2. NABILONE (NABILONE) [Concomitant]
  3. PAROXETINE HCL [Concomitant]

REACTIONS (3)
  - COAGULOPATHY [None]
  - LIP HAEMORRHAGE [None]
  - MOUTH INJURY [None]
